FAERS Safety Report 4287621-4 (Version None)
Quarter: 2004Q1

REPORT INFORMATION
  Report Type: 
  Country: None (occurrence: None)
  Receive Date: 20040209
  Receipt Date: 20030807
  Transmission Date: 20041129
  Serious: No
  Sender: FDA-Public Use
  Company Number: US-GLAXOSMITHKLINE-A0420112A

PATIENT
  Age: 41 Year
  Sex: Female

DRUGS (2)
  1. PAXIL CR [Suspect]
     Indication: POST-TRAUMATIC STRESS DISORDER
     Route: 048
     Dates: start: 20030715
  2. NEXIUM [Concomitant]

REACTIONS (1)
  - ANXIETY [None]
